FAERS Safety Report 13340463 (Version 1)
Quarter: 2017Q1

REPORT INFORMATION
  Report Type: Spontaneous
  Country: US (occurrence: US)
  Receive Date: 20170316
  Receipt Date: 20170316
  Transmission Date: 20170428
  Serious: No
  Sender: FDA-Public Use
  Company Number: US-PFIZER INC-2017113877

PATIENT
  Age: 57 Year
  Sex: Male
  Weight: 71.21 kg

DRUGS (2)
  1. ADVIL [Suspect]
     Active Substance: IBUPROFEN
     Indication: ARTHRITIS
     Dosage: 200 MG, (THREE 200 MG TABLETS ONCE)
     Dates: start: 201703, end: 20170314
  2. ADVIL [Suspect]
     Active Substance: IBUPROFEN
     Indication: SPONDYLITIS

REACTIONS (2)
  - Product use issue [Unknown]
  - Drug ineffective [Unknown]
